FAERS Safety Report 22006817 (Version 1)
Quarter: 2023Q1

REPORT INFORMATION
  Report Type: Other
  Country: None (occurrence: US)
  Receive Date: 20230217
  Receipt Date: 20230217
  Transmission Date: 20230417
  Serious: Yes (Death)
  Sender: FDA-Public Use
  Company Number: US-Vi-Jon Inc.-2138141

PATIENT
  Age: 81 Year
  Sex: Female

DRUGS (1)
  1. MAGNESIUM CITRATE [Suspect]
     Active Substance: MAGNESIUM CITRATE
     Indication: Bowel preparation
     Route: 048
     Dates: start: 20220502, end: 20220502

REACTIONS (1)
  - Sepsis [Fatal]
